FAERS Safety Report 8607415 (Version 3)
Quarter: 2014Q2

REPORT INFORMATION
  Report Type: Spontaneous
  Country: US (occurrence: US)
  Receive Date: 20120611
  Receipt Date: 20140401
  Transmission Date: 20141212
  Serious: No
  Sender: FDA-Public Use
  Company Number: US-ASTRAZENECA-2012SE35177

PATIENT
  Sex: Female
  Weight: 88 kg

DRUGS (14)
  1. NEXIUM [Suspect]
     Indication: GASTROOESOPHAGEAL REFLUX DISEASE
     Route: 048
  2. NEXIUM [Suspect]
     Indication: GASTROOESOPHAGEAL REFLUX DISEASE
     Dosage: ONCE A DAY
     Route: 048
     Dates: start: 200706
  3. NEXIUM [Suspect]
     Indication: GASTROOESOPHAGEAL REFLUX DISEASE
     Route: 048
     Dates: start: 20090706
  4. FLUCONAZOLE [Concomitant]
     Dates: start: 20090317
  5. ZANTAC [Concomitant]
     Dates: start: 20090706
  6. ZANTAC [Concomitant]
  7. SULFAMETHOXAZOLE [Concomitant]
     Dates: start: 20090513
  8. METRONIDAZOLE [Concomitant]
     Dates: start: 20090716
  9. CEPHALEXIN [Concomitant]
     Dates: start: 20090908
  10. HYDROCODONE\APAP [Concomitant]
     Dosage: 7.5-500
     Dates: start: 20091019
  11. ULTRAM [Concomitant]
     Dates: start: 20100510
  12. ULTRAM [Concomitant]
     Dosage: 50 MG, EVERY 6 HOURS AS NEEDED
  13. MOBIC [Concomitant]
     Dates: start: 20091218
  14. MOBIC [Concomitant]

REACTIONS (8)
  - Osteoporosis [Unknown]
  - Bone disorder [Unknown]
  - Multiple fractures [Unknown]
  - Arthropathy [Unknown]
  - Back disorder [Unknown]
  - Arthritis [Unknown]
  - Rheumatoid arthritis [Unknown]
  - Osteoarthritis [Unknown]
